FAERS Safety Report 7260673-5 (Version None)
Quarter: 2011Q1

REPORT INFORMATION
  Report Type: 
  Country: None (occurrence: None)
  Receive Date: 20110130
  Receipt Date: 20101109
  Transmission Date: 20110831
  Serious: No
  Sender: FDA-Public Use
  Company Number: US-ABBOTT-10P-163-0684826-00

PATIENT
  Sex: Female
  Weight: 78.088 kg

DRUGS (7)
  1. METHOTREXATE [Concomitant]
     Indication: RHEUMATOID ARTHRITIS
  2. VITAMIN D [Concomitant]
     Indication: VITAMIN SUPPLEMENTATION
  3. HUMIRA [Suspect]
     Indication: RHEUMATOID ARTHRITIS
     Dates: start: 20070101
  4. IRON [Concomitant]
     Indication: MINERAL SUPPLEMENTATION
  5. VITAMIN B COMPLEX [Concomitant]
     Indication: VITAMIN SUPPLEMENTATION
  6. FOLIC ACID [Concomitant]
     Indication: VITAMIN SUPPLEMENTATION
  7. PRILOSEC [Concomitant]
     Indication: PRODUCT USED FOR UNKNOWN INDICATION

REACTIONS (15)
  - INFECTION [None]
  - ASTHENIA [None]
  - HAEMATOCRIT DECREASED [None]
  - FATIGUE [None]
  - SINUSITIS [None]
  - PARANASAL SINUS HYPERSECRETION [None]
  - URINARY INCONTINENCE [None]
  - ARTHRALGIA [None]
  - NODULE [None]
  - HAEMOGLOBIN DECREASED [None]
  - COUGH [None]
  - VOMITING [None]
  - UPPER-AIRWAY COUGH SYNDROME [None]
  - WHITE BLOOD CELL COUNT DECREASED [None]
  - DYSPNOEA [None]
